FAERS Safety Report 4628172-4 (Version None)
Quarter: 2005Q2

REPORT INFORMATION
  Report Type: 
  Country: None (occurrence: None)
  Receive Date: 20050406
  Receipt Date: 20050331
  Transmission Date: 20051028
  Serious: Yes (Other)
  Sender: FDA-Public Use
  Company Number: PHBS2005US04541

PATIENT
  Age: 4 Year
  Sex: Male

DRUGS (3)
  1. OXCARBAZEPINE [Suspect]
     Indication: CONVULSION
  2. ETHOSUXIMIDE [Concomitant]
     Route: 065
  3. PHENOBARBITAL [Concomitant]
     Route: 065

REACTIONS (5)
  - CORNEAL REFLEX DECREASED [None]
  - DEVELOPMENTAL DELAY [None]
  - ENCEPHALOMALACIA [None]
  - GRAND MAL CONVULSION [None]
  - HYPERTONIA [None]
